FAERS Safety Report 4954932-6 (Version None)
Quarter: 2006Q1

REPORT INFORMATION
  Report Type: 
  Country: None (occurrence: None)
  Receive Date: 20060327
  Receipt Date: 20060317
  Transmission Date: 20060701
  Serious: Yes (Hospitalization)
  Sender: FDA-Public Use
  Company Number: CH-ABBOTT-06P-151-0328392-00

PATIENT
  Age: 63 Year
  Sex: Male

DRUGS (4)
  1. KLACID [Suspect]
     Indication: PNEUMONIA
     Route: 048
     Dates: start: 20060103, end: 20060114
  2. PHENOXYMETHYL PENICILLIN [Suspect]
     Indication: PNEUMONIA
     Route: 042
     Dates: start: 20060103, end: 20060111
  3. ERDOSTEINE [Concomitant]
     Indication: DRUG USE FOR UNKNOWN INDICATION
     Route: 048
     Dates: start: 20060111, end: 20060114
  4. MACROGOL [Concomitant]
     Indication: DRUG USE FOR UNKNOWN INDICATION
     Route: 048
     Dates: start: 20060111, end: 20060114

REACTIONS (5)
  - GENERAL PHYSICAL HEALTH DETERIORATION [None]
  - HYPERSENSITIVITY [None]
  - PRURITUS [None]
  - RASH [None]
  - URTICARIA [None]
